FAERS Safety Report 11622564 (Version 1)
Quarter: 2015Q4

REPORT INFORMATION
  Report Type: Spontaneous
  Country: US (occurrence: US)
  Receive Date: 20151013
  Receipt Date: 20151013
  Transmission Date: 20160304
  Serious: No
  Sender: FDA-Public Use
  Company Number: US-JNJFOC-20150300025

PATIENT
  Sex: Male

DRUGS (5)
  1. OTHER THERAPEUTIC AGENT [Concomitant]
     Active Substance: UNSPECIFIED INGREDIENT
     Indication: HYPOTHYROIDISM
     Route: 065
  2. ANTIBIOTIC [Concomitant]
     Active Substance: UNSPECIFIED INGREDIENT
     Indication: PRODUCT USED FOR UNKNOWN INDICATION
     Route: 065
  3. TYLENOL [Suspect]
     Active Substance: ACETAMINOPHEN
     Route: 048
  4. ADVIL [Concomitant]
     Active Substance: IBUPROFEN
     Indication: DENTAL IMPLANTATION
     Route: 065
  5. TYLENOL [Suspect]
     Active Substance: ACETAMINOPHEN
     Indication: DENTAL OPERATION
     Route: 048

REACTIONS (3)
  - Product package associated injury [Unknown]
  - Product use issue [Unknown]
  - Product container issue [Unknown]
